FAERS Safety Report 15838084 (Version 2)
Quarter: 2019Q1

REPORT INFORMATION
  Report Type: Spontaneous
  Country: MA (occurrence: MA)
  Receive Date: 20190117
  Receipt Date: 20190128
  Transmission Date: 20190417
  Serious: Yes (Hospitalization, Other)
  Sender: FDA-Public Use
  Company Number: IND-MA-009507513-1901MAR005174

PATIENT
  Age: 2 Day
  Sex: Female

DRUGS (2)
  1. HEPATITIS B VIRUS VACCINE (UNSPECIFIED) [Suspect]
     Active Substance: HEPATITIS B VIRUS VACCINE
  2. ESMERON [Suspect]
     Active Substance: ROCURONIUM BROMIDE
     Dosage: UNK, ONCE
     Dates: start: 20181217

REACTIONS (3)
  - Wrong product administered [Unknown]
  - Product appearance confusion [Unknown]
  - Respiratory distress [Recovered/Resolved]

NARRATIVE: CASE EVENT DATE: 20181217
